FAERS Safety Report 8407332-0 (Version None)
Quarter: 2012Q2

REPORT INFORMATION
  Report Type: 
  Country: None (occurrence: None)
  Receive Date: 20120604
  Receipt Date: 20120529
  Transmission Date: 20120825
  Serious: Yes (Other)
  Sender: FDA-Public Use
  Company Number: US-PFIZER INC-2012129197

PATIENT
  Sex: Male
  Weight: 167.8 kg

DRUGS (2)
  1. IBUPROFEN (ADVIL) [Suspect]
     Indication: ARTHRALGIA
     Dosage: 200 MG, AS NEEDED
     Route: 048
     Dates: start: 20120501, end: 20120528
  2. LISINOPRIL [Concomitant]
     Indication: HYPERTENSION
     Dosage: UNK

REACTIONS (1)
  - HAEMATOCHEZIA [None]
